FAERS Safety Report 6819034-2 (Version None)
Quarter: 2010Q3

REPORT INFORMATION
  Report Type: 
  Country: None (occurrence: None)
  Receive Date: 20100707
  Receipt Date: 20100112
  Transmission Date: 20110219
  Serious: Yes (Hospitalization)
  Sender: FDA-Public Use
  Company Number: US-ASTRAZENECA-2010SE31161

PATIENT
  Sex: Female

DRUGS (3)
  1. SEROQUEL [Suspect]
     Route: 048
     Dates: start: 20010625
  2. KLONOPIN [Concomitant]
     Dates: start: 20010821
  3. RISPERDAL [Concomitant]
     Dates: start: 20010821

REACTIONS (10)
  - ANAEMIA [None]
  - DIABETES MELLITUS [None]
  - DIABETIC KETOACIDOSIS [None]
  - HYPERTENSION [None]
  - LOBAR PNEUMONIA [None]
  - MENTAL STATUS CHANGES [None]
  - METABOLIC ACIDOSIS [None]
  - RENAL FAILURE [None]
  - RESPIRATORY DISTRESS [None]
  - VAGINAL INFECTION [None]
